FAERS Safety Report 4925398-7 (Version None)
Quarter: 2006Q1

REPORT INFORMATION
  Report Type: 
  Country: None (occurrence: None)
  Receive Date: 20060228
  Receipt Date: 20050214
  Transmission Date: 20060701
  Serious: No
  Sender: FDA-Public Use
  Company Number: US-GLAXOSMITHKLINE-A0545467A

PATIENT
  Age: 64 Year
  Sex: Male

DRUGS (5)
  1. LAMICTAL [Suspect]
     Indication: BIPOLAR DISORDER
     Dosage: 200MG PER DAY
     Route: 048
     Dates: start: 20031204, end: 20050201
  2. SEROQUEL [Concomitant]
  3. PARNATE [Concomitant]
  4. ASPIRIN [Concomitant]
  5. ATIVAN [Concomitant]

REACTIONS (4)
  - GENITAL RASH [None]
  - NAIL DISCOLOURATION [None]
  - NAIL DISORDER [None]
  - RASH MACULAR [None]
